FAERS Safety Report 6814650-6 (Version None)
Quarter: 2010Q3

REPORT INFORMATION
  Report Type: 
  Country: None (occurrence: None)
  Receive Date: 20100702
  Receipt Date: 20100624
  Transmission Date: 20110219
  Serious: Yes (Other)
  Sender: FDA-Public Use
  Company Number: JP-PFIZER INC-2010079137

PATIENT
  Age: 73 Year
  Sex: Female

DRUGS (3)
  1. ZOLOFT [Suspect]
     Dosage: 50MG/DAY
     Route: 048
  2. DOGMATYL [Concomitant]
     Dosage: UNK
  3. MYSLEE [Concomitant]
     Dosage: UNK

REACTIONS (1)
  - CHROMATURIA [None]
